FAERS Safety Report 4396834-2 (Version None)
Quarter: 2004Q3

REPORT INFORMATION
  Report Type: 
  Country: None (occurrence: None)
  Receive Date: 20040708
  Receipt Date: 20040701
  Transmission Date: 20050211
  Serious: Yes (Death, Hospitalization)
  Sender: FDA-Public Use
  Company Number: 2004AP03400

PATIENT
  Age: 50 Year
  Sex: Male

DRUGS (5)
  1. SEROQUEL [Suspect]
     Indication: SCHIZOPHRENIA
     Dosage: 200 MG DAILY PO
     Route: 048
     Dates: start: 20040512, end: 20040516
  2. LULLAN [Concomitant]
  3. OLANZAPINE [Concomitant]
  4. ACETAMINOPHEN [Concomitant]
  5. HALOPERIDOL [Concomitant]

REACTIONS (3)
  - HEPATITIS FULMINANT [None]
  - NEUROLEPTIC MALIGNANT SYNDROME [None]
  - PYREXIA [None]
